FAERS Safety Report 9930222 (Version 1)
Quarter: 2014Q1

REPORT INFORMATION
  Report Type: Spontaneous
  Country: US (occurrence: US)
  Receive Date: 20140227
  Receipt Date: 20140227
  Transmission Date: 20141002
  Serious: No
  Sender: FDA-Public Use
  Company Number: US-AMGEN-USASP2013077893

PATIENT
  Age: 18 Year
  Sex: Female

DRUGS (2)
  1. ENBREL [Suspect]
     Indication: RHEUMATOID ARTHRITIS
     Dosage: 25 MG, 2 TIMES/WK
     Route: 065
     Dates: start: 20130915
  2. METHOTREXATE [Concomitant]
     Dosage: 0.8 ML, QWK
     Dates: start: 201308

REACTIONS (1)
  - Injection site bruising [Not Recovered/Not Resolved]
